FAERS Safety Report 10739657 (Version 1)
Quarter: 2015Q1

REPORT INFORMATION
  Report Type: Spontaneous
  Country: US (occurrence: US)
  Receive Date: 20150127
  Receipt Date: 20150127
  Transmission Date: 20150721
  Serious: Yes (Other)
  Sender: FDA-Public Use
  Company Number: US-ROCHE-1381351

PATIENT
  Sex: Female
  Weight: 45.4 kg

DRUGS (1)
  1. XELODA [Suspect]
     Active Substance: CAPECITABINE
     Indication: NEOPLASM MALIGNANT
     Dosage: BID FOR 14 DAYS ON/ 7 DAYS OFF
     Route: 048
     Dates: start: 20140314

REACTIONS (7)
  - Ascites [Recovering/Resolving]
  - Pyrexia [Recovered/Resolved]
  - Vision blurred [Unknown]
  - Peripheral swelling [Unknown]
  - White blood cell count decreased [Not Recovered/Not Resolved]
  - Respiratory tract congestion [Recovered/Resolved]
  - Tumour marker increased [Unknown]
